FAERS Safety Report 16884289 (Version 1)
Quarter: 2019Q4

REPORT INFORMATION
  Report Type: Spontaneous
  Country: CO (occurrence: CO)
  Receive Date: 20191004
  Receipt Date: 20191004
  Transmission Date: 20200122
  Serious: Yes (Hospitalization)
  Sender: FDA-Public Use
  Company Number: CO-TEVA-2019-CO-1116998

PATIENT
  Age: 2 Year

DRUGS (1)
  1. EMTHEXATE (METHOTREXATE) [Suspect]
     Active Substance: METHOTREXATE
     Route: 037

REACTIONS (14)
  - Asthenia [Unknown]
  - Dysphagia [Unknown]
  - Altered state of consciousness [Unknown]
  - Gait disturbance [Unknown]
  - Coordination abnormal [Unknown]
  - Tremor [Unknown]
  - Neurological decompensation [Unknown]
  - Hypoaesthesia [Unknown]
  - Mastication disorder [Unknown]
  - Grip strength decreased [Unknown]
  - Neurological examination abnormal [Unknown]
  - Pyrexia [Unknown]
  - Dysarthria [Unknown]
  - Ataxia [Unknown]

NARRATIVE: CASE EVENT DATE: 201907
